FAERS Safety Report 7331575-0 (Version None)
Quarter: 2011Q1

REPORT INFORMATION
  Report Type: 
  Country: None (occurrence: None)
  Receive Date: 20110304
  Receipt Date: 20110103
  Transmission Date: 20110831
  Serious: Yes (Hospitalization, Other)
  Sender: FDA-Public Use
  Company Number: A0878228A

PATIENT
  Age: 57 Year
  Sex: Female

DRUGS (3)
  1. KEPPRA [Concomitant]
     Dosage: 500MG TWICE PER DAY
     Dates: end: 20100901
  2. LAMICTAL [Suspect]
     Route: 065
     Dates: start: 20100201, end: 20100301
  3. LYRICA [Concomitant]
     Dosage: 300MG TWICE PER DAY
     Dates: start: 20090801, end: 20101201

REACTIONS (1)
  - RASH [None]
